FAERS Safety Report 17367074 (Version 2)
Quarter: 2020Q1

REPORT INFORMATION
  Report Type: Spontaneous
  Country: US (occurrence: US)
  Receive Date: 20200204
  Receipt Date: 20200310
  Transmission Date: 20200409
  Serious: Yes (Other)
  Sender: FDA-Public Use
  Company Number: US-ASTRAZENECA-2020SE14774

PATIENT
  Age: 74 Year
  Sex: Female

DRUGS (6)
  1. SYMBICORT [Suspect]
     Active Substance: BUDESONIDE\FORMOTEROL FUMARATE DIHYDRATE
     Indication: ASTHMA
     Dosage: 160/4.5 MCG, 2 PUFFS IN MORNING
     Route: 055
  2. SYMBICORT [Suspect]
     Active Substance: BUDESONIDE\FORMOTEROL FUMARATE DIHYDRATE
     Indication: CHRONIC OBSTRUCTIVE PULMONARY DISEASE
     Dosage: AS NEEDED AS REQUIRED
     Route: 055
  3. TAMOXIFEN [Suspect]
     Active Substance: TAMOXIFEN
     Indication: NEOPLASM MALIGNANT
     Route: 048
     Dates: start: 2005, end: 2009
  4. SYMBICORT [Suspect]
     Active Substance: BUDESONIDE\FORMOTEROL FUMARATE DIHYDRATE
     Indication: CHRONIC OBSTRUCTIVE PULMONARY DISEASE
     Dosage: 160/4.5 MCG, 2 PUFFS IN MORNING
     Route: 055
  5. SYMBICORT [Suspect]
     Active Substance: BUDESONIDE\FORMOTEROL FUMARATE DIHYDRATE
     Indication: ASTHMA
     Dosage: AS NEEDED AS REQUIRED
     Route: 055
  6. TAMOXIFEN [Suspect]
     Active Substance: TAMOXIFEN
     Indication: PRECANCEROUS CELLS PRESENT
     Route: 048
     Dates: start: 2005, end: 2009

REACTIONS (13)
  - Fatigue [Unknown]
  - Lung neoplasm malignant [Unknown]
  - Product packaging quantity issue [Unknown]
  - Asthma [Unknown]
  - Device use issue [Unknown]
  - Thymoma malignant [Unknown]
  - Hyperplasia [Unknown]
  - Chronic obstructive pulmonary disease [Unknown]
  - Onychomycosis [Unknown]
  - Road traffic accident [Unknown]
  - Drug delivery system malfunction [Unknown]
  - Exostosis [Unknown]
  - Intentional product misuse [Unknown]

NARRATIVE: CASE EVENT DATE: 2014
